FAERS Safety Report 5673639-3 (Version None)
Quarter: 2008Q1

REPORT INFORMATION
  Report Type: 
  Country: None (occurrence: None)
  Receive Date: 20080319
  Receipt Date: 20080307
  Transmission Date: 20080703
  Serious: Yes (Other)
  Sender: FDA-Public Use
  Company Number: US-PFIZER INC-2007108079

PATIENT
  Sex: Female
  Weight: 68 kg

DRUGS (6)
  1. CHANTIX [Suspect]
     Indication: SMOKING CESSATION THERAPY
     Route: 048
     Dates: start: 20071201, end: 20071201
  2. LORAZEPAM [Concomitant]
  3. DICYCLOMINE [Concomitant]
     Indication: MENIERE'S DISEASE
  4. NEXIUM [Concomitant]
  5. DECONGESTANT [Concomitant]
     Indication: MENIERE'S DISEASE
  6. ALL OTHER THERAPEUTIC PRODUCTS [Concomitant]

REACTIONS (4)
  - ABDOMINAL PAIN UPPER [None]
  - GAIT DISTURBANCE [None]
  - OEDEMA [None]
  - TINNITUS [None]
